FAERS Safety Report 24162333 (Version 2)
Quarter: 2024Q3

REPORT INFORMATION
  Report Type: Report from Study
  Country: US (occurrence: US)
  Receive Date: 20240801
  Receipt Date: 20240904
  Transmission Date: 20241017
  Serious: Yes (Other)
  Sender: ACCORD
  Company Number: US-Accord-438206

PATIENT
  Age: 34 Year
  Sex: Male

DRUGS (1)
  1. CLOZAPINE [Suspect]
     Active Substance: CLOZAPINE
     Indication: Product used for unknown indication

REACTIONS (1)
  - Benign ethnic neutropenia [Not Recovered/Not Resolved]

NARRATIVE: CASE EVENT DATE: 20240628
